FAERS Safety Report 4807521-8 (Version None)
Quarter: 2005Q4

REPORT INFORMATION
  Report Type: 
  Country: None (occurrence: None)
  Receive Date: 20051024
  Receipt Date: 20051013
  Transmission Date: 20060501
  Serious: Yes (Hospitalization)
  Sender: FDA-Public Use
  Company Number: CH-JNJFOC-20051003124

PATIENT
  Sex: Female

DRUGS (11)
  1. TOPAMAX [Suspect]
     Route: 048
  2. TOPAMAX [Suspect]
     Indication: DRUG USE FOR UNKNOWN INDICATION
     Route: 048
  3. QUILONORM [Suspect]
     Indication: DRUG USE FOR UNKNOWN INDICATION
     Route: 048
  4. DEROXAT [Suspect]
     Route: 048
  5. DEROXAT [Suspect]
     Route: 048
  6. DEROXAT [Suspect]
     Route: 048
  7. DEROXAT [Suspect]
     Route: 048
  8. DEROXAT [Suspect]
     Indication: DRUG USE FOR UNKNOWN INDICATION
     Route: 048
  9. TEMESTA [Concomitant]
     Route: 048
  10. DALMADORM [Concomitant]
     Route: 048
  11. DALMADORM [Concomitant]
     Route: 048

REACTIONS (4)
  - HYPOTENSION [None]
  - INCORRECT DOSE ADMINISTERED [None]
  - SELF INJURIOUS BEHAVIOUR [None]
  - SINUS BRADYCARDIA [None]
